FAERS Safety Report 8889229 (Version 2)
Quarter: 2012Q4

REPORT INFORMATION
  Report Type: 
  Country: FR (occurrence: FR)
  Receive Date: 20121106
  Receipt Date: 20121219
  Transmission Date: 20130627
  Serious: Yes (Other)
  Sender: FDA-Public Use
  Company Number: FR-ROCHE-1152472

PATIENT
  Sex: Male

DRUGS (3)
  1. XOLAIR [Suspect]
     Indication: PRODUCT USED FOR UNKNOWN INDICATION
     Route: 065
     Dates: start: 20111028, end: 20120606
  2. XOLAIR [Suspect]
     Route: 058
  3. SOLUPRED (FRANCE) [Concomitant]

REACTIONS (2)
  - Neuropathy peripheral [Unknown]
  - Injury associated with device [Unknown]
